FAERS Safety Report 11283053 (Version 1)
Quarter: 2015Q3

REPORT INFORMATION
  Report Type: Spontaneous
  Country: US (occurrence: None)
  Receive Date: 20150717
  Receipt Date: 20150717
  Transmission Date: 20151125
  Serious: Yes (Other)
  Sender: FDA-Public Use
  Company Number: None

PATIENT
  Age: 27 Year
  Sex: Female
  Weight: 72.58 kg

DRUGS (1)
  1. ARIPRAZOLE [Suspect]
     Active Substance: ARIPIPRAZOLE
     Indication: SCHIZOAFFECTIVE DISORDER
     Route: 048
     Dates: start: 20150623, end: 20150630

REACTIONS (1)
  - Insomnia [None]

NARRATIVE: CASE EVENT DATE: 20150623
